FAERS Safety Report 23816522 (Version 2)
Quarter: 2024Q2

REPORT INFORMATION
  Report Type: Spontaneous
  Country: US (occurrence: US)
  Receive Date: 20240503
  Receipt Date: 20240506
  Transmission Date: 20240716
  Serious: No
  Sender: FDA-Public Use
  Company Number: US-PURDUE PHARMA-USA-2024-0309361

PATIENT
  Age: 64 Year
  Sex: Male
  Weight: 104.32 kg

DRUGS (7)
  1. OXYCONTIN [Suspect]
     Active Substance: OXYCODONE HYDROCHLORIDE
     Indication: Pain management
     Dosage: 20 MILLIGRAM, BID (ONE AT BEDTIME)
     Route: 048
     Dates: start: 202404
  2. OXYCODONE [Concomitant]
     Active Substance: OXYCODONE\OXYCODONE HYDROCHLORIDE
     Indication: Breakthrough pain
     Dosage: 10 MILLIGRAM, PRN
     Route: 065
  3. MELOXICAM [Concomitant]
     Active Substance: MELOXICAM
     Indication: Nervous system disorder
     Dosage: 15 MILLIGRAM, DAILY
     Route: 065
  4. CLONIXIN LYSINE [Concomitant]
     Active Substance: CLONIXIN LYSINE
     Indication: Muscle relaxant therapy
     Dosage: 800 MILLIGRAM, BID
     Route: 065
  5. LYRICA [Concomitant]
     Active Substance: PREGABALIN
     Indication: Product used for unknown indication
     Dosage: 70 MILLIGRAM, BID
     Route: 065
  6. VITAMIN D3 [Concomitant]
     Active Substance: CHOLECALCIFEROL
     Indication: Vitamin supplementation
     Dosage: UNK
     Route: 065
  7. DICYCLOMINE [Concomitant]
     Active Substance: DICYCLOMINE HYDROCHLORIDE
     Indication: Diverticulitis
     Dosage: 20 MILLIGRAM, AC(BEFORE EATING)
     Route: 065

REACTIONS (2)
  - Inadequate analgesia [Not Recovered/Not Resolved]
  - Product quality issue [Not Recovered/Not Resolved]

NARRATIVE: CASE EVENT DATE: 20240420
